FAERS Safety Report 5377117-0 (Version None)
Quarter: 2007Q2

REPORT INFORMATION
  Report Type: 
  Country: None (occurrence: None)
  Receive Date: 20070627
  Receipt Date: 20070627
  Transmission Date: 20071010
  Serious: Yes (Hospitalization, Other)
  Sender: FDA-Public Use
  Company Number: None

PATIENT
  Age: 56 Year
  Sex: Male
  Weight: 60 kg

DRUGS (4)
  1. DOCETAXEL/CISPLATIN/5-FLUOROURACIL (TPF) CDDP SOLUTION FOR INFUSION [Suspect]
     Indication: NEOPLASM MALIGNANT
     Dosage: 100 MG/M**2 IV
     Route: 042
     Dates: start: 20061006, end: 20061006
  2. TRAMADOL HCL [Concomitant]
  3. LIDOCAINE [Concomitant]
  4. VOLTAREN [Concomitant]

REACTIONS (15)
  - ACUTE ABDOMEN [None]
  - ATELECTASIS [None]
  - BACTERAEMIA [None]
  - BRONCHITIS [None]
  - CONSTIPATION [None]
  - ENTEROCOCCAL INFECTION [None]
  - FAECALOMA [None]
  - HEPATIC HAEMATOMA [None]
  - LARGE INTESTINE PERFORATION [None]
  - MALIGNANT NEOPLASM PROGRESSION [None]
  - PERITONITIS [None]
  - PNEUMOPERITONEUM [None]
  - RENAL FAILURE [None]
  - SHOCK [None]
  - SPLENIC HAEMATOMA [None]
